FAERS Safety Report 21468133 (Version 2)
Quarter: 2022Q4

REPORT INFORMATION
  Report Type: Report from Study
  Country: US (occurrence: US)
  Receive Date: 20221017
  Receipt Date: 20221230
  Transmission Date: 20230112
  Serious: Yes (Other)
  Sender: FDA-Public Use
  Company Number: US-HORIZON THERAPEUTICS-HZN-2022-007729

PATIENT

DRUGS (23)
  1. RAYOS [Suspect]
     Active Substance: PREDNISONE
     Indication: Immunosuppression
     Dosage: 5 MG, QD
     Route: 048
     Dates: start: 20170721
  2. CYCLOSPORINE [Suspect]
     Active Substance: CYCLOSPORINE
     Indication: Bronchiolitis obliterans syndrome
     Dosage: 10 MG, BID
     Dates: start: 20220422, end: 20220516
  3. CYCLOSPORINE [Suspect]
     Active Substance: CYCLOSPORINE
     Dosage: 10 MG, BID
     Dates: start: 20220601, end: 20220915
  4. TACROLIMUS [Suspect]
     Active Substance: TACROLIMUS
     Indication: Immunosuppression
     Dosage: 0.5 MG, QD
     Route: 048
     Dates: start: 20220601
  5. VITAMINS NOS [Concomitant]
     Active Substance: VITAMINS
     Indication: Prophylaxis
     Dosage: UNK
     Route: 065
     Dates: start: 2004
  6. MELATONIN [Concomitant]
     Active Substance: MELATONIN
     Indication: Insomnia
     Dosage: UNK
     Route: 065
     Dates: start: 201601
  7. ACETAMINOPHEN [Concomitant]
     Active Substance: ACETAMINOPHEN
     Indication: Pain
     Dosage: UNK
     Route: 065
     Dates: start: 20170718
  8. PANTOPRAZOLE [Concomitant]
     Active Substance: PANTOPRAZOLE
     Indication: Gastrooesophageal reflux prophylaxis
     Dosage: UNK
     Route: 065
     Dates: start: 20170720
  9. CLOTRIMAZOLE BIOTECH [Concomitant]
     Indication: Opportunistic infection prophylaxis
     Dosage: UNK
     Route: 065
     Dates: start: 20170721
  10. CALCIUM CARBONATE\VITAMIN D [Concomitant]
     Active Substance: CALCIUM CARBONATE\VITAMIN D
     Indication: Osteoporosis prophylaxis
     Dosage: UNK
     Route: 065
     Dates: start: 20170721
  11. SULFAMETHOXAZOLE\TRIMETHOPRIM [Concomitant]
     Active Substance: SULFAMETHOXAZOLE\TRIMETHOPRIM
     Indication: Prophylaxis
     Dosage: UNK
     Route: 065
     Dates: start: 20170721
  12. METOPROLOL TARTRATE [Concomitant]
     Active Substance: METOPROLOL TARTRATE
     Indication: Atrial fibrillation
     Dosage: UNK
     Route: 065
     Dates: start: 20170801
  13. LORATADINE HYDROCHLORIDE [Concomitant]
     Indication: Rhinitis allergic
     Dosage: UNK
     Route: 065
     Dates: start: 20170807
  14. FLUTICASONE PROPIONATE [Concomitant]
     Active Substance: FLUTICASONE PROPIONATE
     Indication: Rhinitis allergic
     Dosage: UNK
     Route: 065
     Dates: start: 20170810
  15. FUROSEMIDE SODIUM [Concomitant]
     Active Substance: FUROSEMIDE SODIUM
     Indication: Oedema
     Dosage: UNK
     Route: 065
     Dates: start: 20170825
  16. AZITHROMYCIN [Concomitant]
     Active Substance: AZITHROMYCIN
     Indication: Bronchiolitis obliterans syndrome
     Dosage: UNK
     Route: 065
     Dates: start: 20190325
  17. AMINO ACID CHELATE ELEMENTAL MAGNESIUM [Concomitant]
     Indication: Opportunistic infection prophylaxis
     Dosage: UNK
     Route: 065
     Dates: start: 20190906
  18. GEMFIBROZIL [Concomitant]
     Active Substance: GEMFIBROZIL
     Indication: Hyperlipidaemia
     Dosage: UNK
     Route: 065
     Dates: start: 20210813
  19. POSACONAZOLE [Concomitant]
     Active Substance: POSACONAZOLE
     Dosage: UNK
     Route: 065
     Dates: start: 20191001
  20. VALGANCICLOVIR [Concomitant]
     Active Substance: VALGANCICLOVIR
     Indication: Opportunistic infection prophylaxis
     Dosage: UNK
     Route: 065
     Dates: start: 20211006
  21. FLUTICASONE FUROATE\SALMETEROL XINAFOATE [Concomitant]
     Active Substance: FLUTICASONE FUROATE\SALMETEROL XINAFOATE
     Indication: Bronchiolitis obliterans syndrome
     Dosage: UNK
     Route: 065
     Dates: start: 20220228
  22. EVEROLIMUS [Concomitant]
     Active Substance: EVEROLIMUS
     Indication: Immunosuppression
     Dosage: UNK
     Route: 065
     Dates: start: 20220401
  23. IBUPROFEN [Concomitant]
     Active Substance: IBUPROFEN
     Indication: Myalgia
     Dosage: UNK
     Route: 065
     Dates: start: 20220731

REACTIONS (1)
  - Skin squamous cell carcinoma recurrent [Not Recovered/Not Resolved]

NARRATIVE: CASE EVENT DATE: 20220907
